FAERS Safety Report 7647461-2 (Version None)
Quarter: 2011Q3

REPORT INFORMATION
  Report Type: 
  Country: None (occurrence: None)
  Receive Date: 20110801
  Receipt Date: 20110719
  Transmission Date: 20111222
  Serious: Yes (Hospitalization)
  Sender: FDA-Public Use
  Company Number: DE-UCBSA-037433

PATIENT
  Sex: Female

DRUGS (6)
  1. SIMVASTATIN [Concomitant]
     Dosage: UNKNOWN DOSE
  2. KEPPRA [Suspect]
     Dosage: 1-0-1
     Dates: start: 20110701
  3. MELPORON [Concomitant]
     Dosage: UNKNOWN DOSE
  4. ALLOPURINOL [Concomitant]
     Dosage: UNKNOWN DOSE
  5. ABILIFY [Concomitant]
     Dosage: UNKNOWN DOSE
  6. NORTRIPTYLINE HCL [Concomitant]
     Dosage: UNKNOWN DOSE

REACTIONS (2)
  - PETIT MAL EPILEPSY [None]
  - LOSS OF CONSCIOUSNESS [None]
